FAERS Safety Report 4654809-X (Version None)
Quarter: 2005Q2

REPORT INFORMATION
  Report Type: 
  Country: None (occurrence: None)
  Receive Date: 20050505
  Receipt Date: 20050505
  Transmission Date: 20051028
  Serious: Yes (Other)
  Sender: FDA-Public Use
  Company Number: None

PATIENT
  Age: 44 Year
  Sex: Male
  Weight: 68.0396 kg

DRUGS (1)
  1. TRAZODONE    100MG     PLIVA [Suspect]
     Indication: MAJOR DEPRESSION
     Dosage: 100MG   FOUR TABS QHS   ORAL
     Route: 048
     Dates: start: 20050410, end: 20050429

REACTIONS (1)
  - THERAPEUTIC RESPONSE UNEXPECTED WITH DRUG SUBSTITUTION [None]
